FAERS Safety Report 9306116 (Version 2)
Quarter: 2013Q2

REPORT INFORMATION
  Report Type: Spontaneous
  Country: US (occurrence: US)
  Receive Date: 20130523
  Receipt Date: 20130619
  Transmission Date: 20140414
  Serious: No
  Sender: FDA-Public Use
  Company Number: US-ROXANE LABORATORIES, INC.-2013-RO-00840RO

PATIENT
  Sex: Female

DRUGS (2)
  1. METHADONE [Suspect]
     Indication: NECK PAIN
     Dosage: 90 MG
     Route: 048
     Dates: start: 20130510
  2. OXYCODONE [Concomitant]
     Indication: NECK PAIN
     Dosage: 15 MG
     Route: 048

REACTIONS (2)
  - Drug ineffective [Not Recovered/Not Resolved]
  - Product quality issue [Not Recovered/Not Resolved]
